FAERS Safety Report 9961396 (Version 2)
Quarter: 2014Q1

REPORT INFORMATION
  Report Type: Spontaneous
  Country: US (occurrence: US)
  Receive Date: 20140305
  Receipt Date: 20140318
  Transmission Date: 20141002
  Serious: Yes (Hospitalization)
  Sender: FDA-Public Use
  Company Number: US-BAYER-2014-031517

PATIENT
  Age: 39 Year
  Sex: Female
  Weight: 49.89 kg

DRUGS (5)
  1. MIRENA [Suspect]
     Indication: CONTRACEPTION
     Dosage: 20 MCG/24HR, CONT
     Route: 015
     Dates: start: 20030530, end: 20080722
  2. EFFEXOR XR [Concomitant]
     Indication: ANXIETY
     Dosage: 150 MG, QD
     Route: 048
     Dates: start: 2004
  3. MUCINEX [Concomitant]
     Dosage: 600 MG, BID
     Route: 048
  4. MULTIVITAMIN [Concomitant]
     Dosage: DAILY
     Route: 048
  5. SINGULAIR [Concomitant]
     Dosage: 10 MG, QD
     Route: 048

REACTIONS (5)
  - Uterine perforation [None]
  - Device misuse [None]
  - Injury [None]
  - Pain [None]
  - Emotional distress [None]
